FAERS Safety Report 10515354 (Version 3)
Quarter: 2015Q1

REPORT INFORMATION
  Report Type: Spontaneous
  Country: US (occurrence: None)
  Receive Date: 20141009
  Receipt Date: 20150120
  Transmission Date: 20150720
  Serious: Yes (Death)
  Sender: FDA-Public Use
  Company Number: TIR-03836

PATIENT

DRUGS (2)
  1. VASOPRESSORS (VASOPRESSIN, DOPAMINE, EPINEPHRINE, OR NOREPINEPHRINE) [Concomitant]
  2. LEVOTHYROXINE [Suspect]
     Active Substance: LEVOTHYROXINE
     Indication: BRAIN DEATH

REACTIONS (2)
  - Therapeutic response unexpected [None]
  - Brain death [None]

NARRATIVE: CASE EVENT DATE: 2004
